FAERS Safety Report 9821171 (Version 1)
Quarter: 2013Q4

REPORT INFORMATION
  Report Type: Spontaneous
  Country: US (occurrence: None)
  Receive Date: 20131028
  Receipt Date: 20131028
  Transmission Date: 20140711
  Serious: Yes (Other)
  Sender: FDA-Public Use
  Company Number: 2013US001370

PATIENT
  Sex: Female

DRUGS (1)
  1. ICLUSIG [Suspect]
     Dates: start: 20130226

REACTIONS (3)
  - Headache [None]
  - Pain [None]
  - Nausea [None]
